FAERS Safety Report 5525171-5 (Version None)
Quarter: 2007Q4

REPORT INFORMATION
  Report Type: 
  Country: None (occurrence: None)
  Receive Date: 20071119
  Receipt Date: 20071119
  Transmission Date: 20080405
  Serious: Yes (Other)
  Sender: FDA-Public Use
  Company Number: None

PATIENT
  Age: 29 Year
  Sex: Male
  Weight: 56.6996 kg

DRUGS (1)
  1. LARIAM [Suspect]
     Indication: MALARIA PROPHYLAXIS
     Dosage: 250 MG ONCE PER WEEK PO
     Route: 048
     Dates: start: 20071017, end: 20071031

REACTIONS (5)
  - ADVERSE DRUG REACTION [None]
  - ANXIETY [None]
  - DIZZINESS [None]
  - MENTAL DISORDER [None]
  - PARANOIA [None]
